FAERS Safety Report 5650567-0 (Version None)
Quarter: 2008Q1

REPORT INFORMATION
  Report Type: 
  Country: None (occurrence: None)
  Receive Date: 20080131
  Receipt Date: 20071212
  Transmission Date: 20080703
  Serious: No
  Sender: FDA-Public Use
  Company Number: US200712002734

PATIENT
  Age: 61 Year
  Sex: Female

DRUGS (6)
  1. BYETTA [Suspect]
     Indication: TYPE 2 DIABETES MELLITUS
     Dosage: 5 UG, 2/D, SUBCUTANEOUS; 10 UG, 2/D, SUBCUTANEOUS
     Route: 058
     Dates: start: 20071101, end: 20071201
  2. BYETTA [Suspect]
     Indication: TYPE 2 DIABETES MELLITUS
     Dosage: 5 UG, 2/D, SUBCUTANEOUS; 10 UG, 2/D, SUBCUTANEOUS
     Route: 058
     Dates: start: 20071201
  3. GLYBURIDE [Concomitant]
  4. METFORMIN HCL [Concomitant]
  5. AMOXICILLIN [Concomitant]
  6. NOVOCAIN (PROCAIN HYDROCHLORIDE) [Concomitant]

REACTIONS (8)
  - BRONCHITIS [None]
  - COUGH [None]
  - DECREASED APPETITE [None]
  - DEVICE BREAKAGE [None]
  - DRUG EFFECT DECREASED [None]
  - GINGIVAL SWELLING [None]
  - ORAL PAIN [None]
  - WHEEZING [None]
